FAERS Safety Report 20206754 (Version 1)
Quarter: 2021Q4

REPORT INFORMATION
  Report Type: Spontaneous
  Country: US (occurrence: None)
  Receive Date: 20211219
  Receipt Date: 20211219
  Transmission Date: 20220303
  Serious: Yes (Other)
  Sender: FDA-Public Use
  Company Number: None

PATIENT
  Age: 65 Year
  Sex: Female
  Weight: 83 kg

DRUGS (22)
  1. HIZENTRA [Suspect]
     Active Substance: HUMAN IMMUNOGLOBULIN G
     Indication: Immunodeficiency common variable
     Dosage: FREQUENCY : WEEKLY;?
     Route: 058
     Dates: start: 20210121
  2. Acetaminophen 650 mg po [Concomitant]
  3. Diphenhydramine 25 mg po [Concomitant]
  4. advair diskus 500/50 IN [Concomitant]
  5. albuterol nebulizer in [Concomitant]
  6. ASTELIN [Concomitant]
     Active Substance: AZELASTINE HYDROCHLORIDE
  7. celebrex 200 mg po [Concomitant]
  8. diazepam 5 mg po [Concomitant]
  9. folic acid 1 mg po [Concomitant]
  10. gabapentin 300 mg po [Concomitant]
  11. Norco 7.5/325 mg po [Concomitant]
  12. hyoscyamine 0.125 mcg SL [Concomitant]
  13. lipitor 40 mg po [Concomitant]
  14. Meclizine 25 mg po [Concomitant]
  15. Oxybutynin ER 10 mg po [Concomitant]
  16. Plaquenil 200 mg po [Concomitant]
  17. Premarin 0.625 mg po [Concomitant]
  18. Protonix 40 mg po [Concomitant]
  19. Singulair 10 mg po [Concomitant]
  20. Trazadone 50 mg po [Concomitant]
  21. Zoloft 150 mg po [Concomitant]
  22. Zolpidem 10 mg po [Concomitant]

REACTIONS (3)
  - Infusion site erythema [None]
  - Infusion site swelling [None]
  - Product quality issue [None]

NARRATIVE: CASE EVENT DATE: 20211118
